FAERS Safety Report 16571418 (Version 1)
Quarter: 2019Q3

REPORT INFORMATION
  Report Type: Spontaneous
  Country: FR (occurrence: FR)
  Receive Date: 20190715
  Receipt Date: 20190715
  Transmission Date: 20191004
  Serious: Yes (Other)
  Sender: FDA-Public Use
  Company Number: FR-MYLANLABS-2019M1064329

PATIENT
  Age: 79 Year
  Sex: Male

DRUGS (3)
  1. DEXAMETHASONE. [Suspect]
     Active Substance: DEXAMETHASONE
     Indication: CUTANEOUS LYMPHOMA
     Dosage: 20 MILLIGRAM, QW
     Route: 042
     Dates: start: 20180906, end: 20181123
  2. VELCADE [Suspect]
     Active Substance: BORTEZOMIB
     Indication: CUTANEOUS LYMPHOMA
     Dosage: 1,3MG/M2
     Route: 058
     Dates: start: 20180906, end: 20181123
  3. REVLIMID [Suspect]
     Active Substance: LENALIDOMIDE
     Indication: CUTANEOUS LYMPHOMA
     Dosage: 21J PAR MOIS
     Route: 048
     Dates: start: 20180906, end: 20181123

REACTIONS (1)
  - Rash generalised [Recovering/Resolving]

NARRATIVE: CASE EVENT DATE: 20181223
